FAERS Safety Report 14096467 (Version 2)
Quarter: 2017Q4

REPORT INFORMATION
  Report Type: Spontaneous
  Country: US (occurrence: US)
  Receive Date: 20171017
  Receipt Date: 20171128
  Transmission Date: 20180321
  Serious: Yes (Hospitalization, Other)
  Sender: FDA-Public Use
  Company Number: US-AMGEN-USASP2017155561

PATIENT
  Age: 68 Year
  Sex: Female
  Weight: 96.96 kg

DRUGS (1)
  1. NEULASTA [Suspect]
     Active Substance: PEGFILGRASTIM
     Indication: NEUTROPENIA
     Dosage: 6 MG, UNK
     Route: 065
     Dates: start: 20170921

REACTIONS (2)
  - Staphylococcal infection [Recovered/Resolved]
  - Application site cellulitis [Recovered/Resolved]

NARRATIVE: CASE EVENT DATE: 20171002
